FAERS Safety Report 9029914 (Version 2)
Quarter: 2013Q1

REPORT INFORMATION
  Report Type: Spontaneous
  Country: US (occurrence: US)
  Receive Date: 20130124
  Receipt Date: 20130211
  Transmission Date: 20140127
  Serious: No
  Sender: FDA-Public Use
  Company Number: US-B.I. PHARMACEUTICALS,INC./RIDGEFIELD-2013-BI-01083BP

PATIENT
  Sex: Male
  Weight: 86 kg

DRUGS (9)
  1. SPIRIVA [Suspect]
     Indication: ASTHMA
     Dosage: 18 MCG
     Route: 055
     Dates: start: 20121227
  2. ATIVAN [Concomitant]
     Indication: ANXIETY
     Dosage: 2 MG
     Route: 048
  3. ISENTRESS [Concomitant]
     Indication: HIV INFECTION
     Dosage: 800 MG
     Route: 048
  4. INTELENCE [Concomitant]
     Indication: HIV INFECTION
     Dosage: 400 MG
     Route: 048
  5. PROPECIA [Concomitant]
     Indication: ALOPECIA
     Dosage: 1 MG
     Route: 048
  6. TRUVADA [Concomitant]
     Indication: HIV INFECTION
     Route: 042
  7. ALBUTEROL INHALER [Concomitant]
     Indication: ASTHMA
     Route: 055
     Dates: start: 20121227
  8. LOSARTAN [Concomitant]
     Indication: HYPERTENSION
     Dosage: 25 MG
     Route: 048
  9. ASPIRIN [Concomitant]
     Dosage: 81 MG
     Route: 048

REACTIONS (3)
  - Dyspepsia [Not Recovered/Not Resolved]
  - Dyspnoea [Not Recovered/Not Resolved]
  - Product quality issue [Not Recovered/Not Resolved]
